FAERS Safety Report 8840962 (Version 2)
Quarter: 2014Q2

REPORT INFORMATION
  Report Type: Spontaneous
  Country: FR (occurrence: FR)
  Receive Date: 20121015
  Receipt Date: 20131018
  Transmission Date: 20141212
  Serious: Yes (Life-Threatening, Hospitalization)
  Sender: FDA-Public Use
  Company Number: FR-PFIZER INC-2012249795

PATIENT
  Age: 53 Year
  Sex: Female

DRUGS (2)
  1. ARACYTINE [Suspect]
     Indication: ACUTE MYELOID LEUKAEMIA
     Dosage: CYCLIC
     Dates: start: 20120523
  2. AMSACRINE [Concomitant]
     Indication: ACUTE MYELOID LEUKAEMIA
     Dosage: UNK
     Dates: start: 20120523

REACTIONS (1)
  - Cerebellar syndrome [Recovered/Resolved]
